FAERS Safety Report 11207435 (Version 1)
Quarter: 2015Q2

REPORT INFORMATION
  Report Type: Report from Study
  Country: US (occurrence: US)
  Receive Date: 20150622
  Receipt Date: 20150622
  Transmission Date: 20150821
  Serious: No
  Sender: FDA-Public Use
  Company Number: US-ABBVIE-15P-163-1378877-00

PATIENT
  Sex: Female

DRUGS (4)
  1. MODERIBA [Suspect]
     Active Substance: RIBAVIRIN
     Indication: HEPATITIS C
     Dosage: UNKNOWN DOSE
     Route: 048
     Dates: start: 20150207, end: 201503
  2. MODERIBA [Suspect]
     Active Substance: RIBAVIRIN
     Dosage: DELAY FOR 10 DAYS, UNKNOWN DOSE
     Route: 048
     Dates: start: 201503
  3. VIEKIRA PAK [Suspect]
     Active Substance: DASABUVIR\OMBITASVIR\PARITAPREVIR\RITONAVIR
     Dosage: DELAY FOR 10 DAYS?BUT CONTINUED TO TAKE 3 AND 1, AND MD AWARE.
     Route: 048
     Dates: start: 201503
  4. VIEKIRA PAK [Suspect]
     Active Substance: DASABUVIR\OMBITASVIR\PARITAPREVIR\RITONAVIR
     Indication: HEPATITIS C
     Dosage: 3 AND 1
     Route: 048
     Dates: start: 20150207, end: 201503

REACTIONS (11)
  - Pulmonary congestion [Recovered/Resolved]
  - Dysgeusia [Not Recovered/Not Resolved]
  - Drug dose omission [Not Recovered/Not Resolved]
  - Feeling abnormal [Not Recovered/Not Resolved]
  - Fatigue [Not Recovered/Not Resolved]
  - Dyspnoea [Not Recovered/Not Resolved]
  - Feeling abnormal [Recovered/Resolved]
  - Dyspnoea [Not Recovered/Not Resolved]
  - Sinus headache [Not Recovered/Not Resolved]
  - Pulmonary congestion [Not Recovered/Not Resolved]
  - Sinus congestion [Not Recovered/Not Resolved]

NARRATIVE: CASE EVENT DATE: 2015
